FAERS Safety Report 14980938 (Version 2)
Quarter: 2018Q2

REPORT INFORMATION
  Report Type: Spontaneous
  Country: US (occurrence: US)
  Receive Date: 20180606
  Receipt Date: 20180615
  Transmission Date: 20180711
  Serious: Yes (Other)
  Sender: FDA-Public Use
  Company Number: US-GILEAD-2018-0340811

PATIENT
  Age: 54 Year
  Sex: Male
  Weight: 70.8 kg

DRUGS (5)
  1. RAMPRIL [Concomitant]
     Active Substance: RAMIPRIL
  2. DRAMAMINE [Concomitant]
     Active Substance: DIMENHYDRINATE
  3. SILDENAFIL CITRATE. [Concomitant]
     Active Substance: SILDENAFIL CITRATE
  4. VOSEVI [Suspect]
     Active Substance: SOFOSBUVIR\VELPATASVIR\VOXILAPREVIR
     Indication: HEPATITIS C
     Dosage: UNK
     Route: 048
  5. ACYCLOVIR                          /00587301/ [Concomitant]
     Active Substance: ACYCLOVIR
     Indication: STOMATITIS

REACTIONS (3)
  - Treatment failure [Unknown]
  - Hepatitis C [Unknown]
  - Genotype drug resistance test positive [Not Recovered/Not Resolved]
